FAERS Safety Report 25715618 (Version 3)
Quarter: 2025Q4

REPORT INFORMATION
  Report Type: Spontaneous
  Country: EU (occurrence: EU)
  Receive Date: 20250822
  Receipt Date: 20251231
  Transmission Date: 20260118
  Serious: Yes (Hospitalization, Other)
  Sender: AUROBINDO
  Company Number: EU-ELI_LILLY_AND_COMPANY-ES202503020785

PATIENT
  Age: 59 Year
  Sex: Female

DRUGS (5)
  1. FULVESTRANT [Suspect]
     Active Substance: FULVESTRANT
     Indication: Breast cancer metastatic
     Dosage: UNK
     Route: 065
  2. ABEMACICLIB [Suspect]
     Active Substance: ABEMACICLIB
     Indication: Breast cancer metastatic
     Dosage: 300 MILLIGRAM, ONCE A DAY
     Route: 061
     Dates: start: 20250317
  3. ABEMACICLIB [Suspect]
     Active Substance: ABEMACICLIB
     Dosage: 300 MILLIGRAM, ONCE A DAY
     Route: 061
  4. ABEMACICLIB [Suspect]
     Active Substance: ABEMACICLIB
     Dosage: 300 MILLIGRAM, ONCE A DAY (150 MG, BID)
     Route: 061
  5. ABEMACICLIB [Suspect]
     Active Substance: ABEMACICLIB
     Dosage: 300 MILLIGRAM, ONCE A DAY (150 MG, BID)
     Route: 061

REACTIONS (30)
  - Viral sepsis [Recovered/Resolved]
  - Anaemia [Recovering/Resolving]
  - Anxiety [Unknown]
  - Early satiety [Unknown]
  - Decreased appetite [Recovered/Resolved]
  - Somnolence [Recovering/Resolving]
  - Abdominal discomfort [Recovering/Resolving]
  - Abdominal pain upper [Recovering/Resolving]
  - Vascular pain [Recovering/Resolving]
  - Pain in extremity [Recovering/Resolving]
  - Red cell distribution width decreased [Recovering/Resolving]
  - Diarrhoea [Recovered/Resolved]
  - Fatigue [Recovering/Resolving]
  - White blood cell count decreased [Recovering/Resolving]
  - Red blood cell count decreased [Recovering/Resolving]
  - Frequent bowel movements [Recovering/Resolving]
  - Lacrimation increased [Recovered/Resolved]
  - Musculoskeletal stiffness [Recovered/Resolved]
  - Pigmentation disorder [Recovering/Resolving]
  - Vein disorder [Recovering/Resolving]
  - Peripheral swelling [Recovering/Resolving]
  - Oedema peripheral [Recovering/Resolving]
  - Pyrexia [Recovered/Resolved]
  - Decreased immune responsiveness [Recovering/Resolving]
  - Dehydration [Recovered/Resolved]
  - Weight increased [Recovering/Resolving]
  - Swelling [Recovering/Resolving]
  - Fluid retention [Recovering/Resolving]
  - Trichorrhexis [Recovering/Resolving]
  - Myalgia [Recovering/Resolving]

NARRATIVE: CASE EVENT DATE: 20250320
